FAERS Safety Report 8330362-4 (Version None)
Quarter: 2012Q2

REPORT INFORMATION
  Report Type: 
  Country: None (occurrence: None)
  Receive Date: 20120502
  Receipt Date: 20120419
  Transmission Date: 20120825
  Serious: Yes (Other)
  Sender: FDA-Public Use
  Company Number: JP-MYLANLABS-2012S1008313

PATIENT
  Age: 5 Decade
  Sex: Female

DRUGS (2)
  1. CARBOPLATIN [Suspect]
     Indication: SQUAMOUS CELL CARCINOMA OF SKIN
     Route: 041
     Dates: start: 20120417
  2. EQUA [Concomitant]
     Indication: PRODUCT USED FOR UNKNOWN INDICATION

REACTIONS (1)
  - BLOOD GLUCOSE INCREASED [None]
